FAERS Safety Report 10387624 (Version 2)
Quarter: 2014Q4

REPORT INFORMATION
  Report Type: Spontaneous
  Country: US (occurrence: US)
  Receive Date: 20140815
  Receipt Date: 20141007
  Transmission Date: 20150528
  Serious: Yes (Hospitalization, Other)
  Sender: FDA-Public Use
  Company Number: US-BAYER-2014-120586

PATIENT
  Age: 20 Year
  Sex: Female
  Weight: 57.14 kg

DRUGS (1)
  1. MIRENA [Suspect]
     Active Substance: LEVONORGESTREL
     Indication: CONTRACEPTION
     Dosage: 20 MCG/24HR, CONT
     Route: 015
     Dates: start: 20101214, end: 20130417

REACTIONS (8)
  - Genital haemorrhage [None]
  - Infection [None]
  - Menorrhagia [None]
  - Uterine perforation [None]
  - Device dislocation [None]
  - Medical device pain [None]
  - Injury [None]
  - Device misuse [None]

NARRATIVE: CASE EVENT DATE: 201303
